FAERS Safety Report 7564976-6 (Version None)
Quarter: 2011Q2

REPORT INFORMATION
  Report Type: 
  Country: None (occurrence: None)
  Receive Date: 20110622
  Receipt Date: 20110412
  Transmission Date: 20111010
  Serious: Yes (Other)
  Sender: FDA-Public Use
  Company Number: US-MYLANLABS-2011S1004788

PATIENT
  Age: 65 Year
  Sex: Female
  Weight: 60.78 kg

DRUGS (10)
  1. CLOZAPINE [Suspect]
     Indication: PSYCHOTIC DISORDER
     Route: 048
     Dates: end: 20110310
  2. CLOZAPINE [Suspect]
     Route: 048
     Dates: end: 20110310
  3. FLUPHENAZINE DECANOATE [Suspect]
     Route: 030
  4. LEVOTHYROXINE SODIUM [Concomitant]
  5. LOPERAMIDE [Concomitant]
  6. LORAZEPAM [Concomitant]
  7. MAALOX [Concomitant]
  8. MILK OF MAGNESIA TAB [Concomitant]
  9. OMEPRAZOLE [Suspect]
     Route: 048
  10. BENZTROPINE MESYLATE [Concomitant]

REACTIONS (2)
  - GRANULOCYTOPENIA [None]
  - LEUKOPENIA [None]
